FAERS Safety Report 20938310 (Version 1)
Quarter: 2022Q2

REPORT INFORMATION
  Report Type: Spontaneous
  Country: US (occurrence: None)
  Receive Date: 20220608
  Receipt Date: 20220608
  Transmission Date: 20220721
  Serious: Yes (Life-Threatening, Hospitalization, Disabling, Other)
  Sender: FDA-Public Use
  Company Number: None

PATIENT
  Age: 23 Year
  Sex: Male
  Weight: 65.25 kg

DRUGS (4)
  1. .DELTA.8-TETRAHYDROCANNABINOL\CANNABIDIOL\HERBALS [Suspect]
     Active Substance: .DELTA.8-TETRAHYDROCANNABINOL\CANNABIDIOL\HERBALS
     Indication: Anxiety
     Dates: start: 20190601, end: 20220529
  2. VITAMINS [Concomitant]
     Active Substance: VITAMINS
  3. CBD OIL [Concomitant]
  4. CANNABIS SATIVA SUBSP. INDICA TOP [Concomitant]
     Active Substance: CANNABIS SATIVA SUBSP. INDICA TOP

REACTIONS (4)
  - Psychotic disorder [None]
  - Physical assault [None]
  - Drug screen positive [None]
  - Craniocerebral injury [None]

NARRATIVE: CASE EVENT DATE: 20220527
